FAERS Safety Report 8476774-X (Version None)
Quarter: 2012Q2

REPORT INFORMATION
  Report Type: 
  Country: None (occurrence: None)
  Receive Date: 20120628
  Receipt Date: 20120627
  Transmission Date: 20120825
  Serious: Yes (Hospitalization)
  Sender: FDA-Public Use
  Company Number: GB-MERCK-1112GBR00081

PATIENT
  Sex: Male

DRUGS (1)
  1. RALTEGRAVIR [Suspect]
     Route: 048

REACTIONS (1)
  - PNEUMONIA PNEUMOCOCCAL [None]
